FAERS Safety Report 16167758 (Version 1)
Quarter: 2019Q2

REPORT INFORMATION
  Report Type: Other
  Country: GB (occurrence: GB)
  Receive Date: 20190408
  Receipt Date: 20190408
  Transmission Date: 20190711
  Serious: Yes (Other)
  Sender: FDA-Public Use
  Company Number: GB-ASTELLAS-2019US013818

PATIENT
  Age: 62 Year
  Sex: Male

DRUGS (1)
  1. REGADENOSON [Suspect]
     Active Substance: REGADENOSON
     Indication: SCAN MYOCARDIAL PERFUSION
     Dosage: 0.4 MG, UNKNOWN FREQ.(2 INJECTIONS GIVEN)
     Route: 042

REACTIONS (8)
  - Injection site bruising [Unknown]
  - Injection site extravasation [Unknown]
  - Tremor [Unknown]
  - Muscular weakness [Unknown]
  - Rash [Unknown]
  - Balance disorder [Unknown]
  - Labile blood pressure [Unknown]
  - Dizziness [Unknown]

NARRATIVE: CASE EVENT DATE: 20170823
